FAERS Safety Report 14350833 (Version 2)
Quarter: 2018Q1

REPORT INFORMATION
  Report Type: Spontaneous
  Country: US (occurrence: US)
  Receive Date: 20180104
  Receipt Date: 20180202
  Transmission Date: 20180509
  Serious: Yes (Other)
  Sender: FDA-Public Use
  Company Number: US-CELGENEUS-USA-20180100407

PATIENT
  Sex: Female
  Weight: 99.88 kg

DRUGS (1)
  1. REVLIMID [Suspect]
     Active Substance: LENALIDOMIDE
     Indication: PLASMA CELL MYELOMA
     Dosage: 5 MILLIGRAM
     Route: 048
     Dates: start: 20170731

REACTIONS (4)
  - Renal failure [Recovered/Resolved]
  - Cataract [Unknown]
  - Blood phosphorus decreased [Recovered/Resolved]
  - Fatigue [Unknown]
